FAERS Safety Report 7314384-8 (Version None)
Quarter: 2011Q1

REPORT INFORMATION
  Report Type: 
  Country: None (occurrence: None)
  Receive Date: 20110225
  Receipt Date: 20100823
  Transmission Date: 20110831
  Serious: No
  Sender: FDA-Public Use
  Company Number: US-MYLANLABS-2010S1014308

PATIENT
  Age: 19 Year
  Sex: Male
  Weight: 83.01 kg

DRUGS (2)
  1. CLARAVIS [Suspect]
     Indication: ACNE
     Dates: start: 20100301
  2. AMNESTEEM [Suspect]
     Indication: ACNE
     Dates: end: 20100726

REACTIONS (3)
  - MOOD SWINGS [None]
  - ABNORMAL BEHAVIOUR [None]
  - ANGER [None]
